FAERS Safety Report 8061138-3 (Version None)
Quarter: 2012Q1

REPORT INFORMATION
  Report Type: 
  Country: None (occurrence: None)
  Receive Date: 20120120
  Receipt Date: 20110606
  Transmission Date: 20120608
  Serious: No
  Sender: FDA-Public Use
  Company Number: US-ALLERGAN-1107669US

PATIENT
  Age: 75 Year
  Sex: Female

DRUGS (2)
  1. RESTASIS [Suspect]
     Indication: SJOGREN'S SYNDROME
     Dosage: 1 GTT, BID
     Route: 047
     Dates: start: 20110501, end: 20110605
  2. OTC EYE DROPS FOR DRY EYES [Concomitant]
     Dosage: UNK
     Route: 047

REACTIONS (2)
  - NAUSEA [None]
  - DECREASED APPETITE [None]
